FAERS Safety Report 24339430 (Version 5)
Quarter: 2025Q1

REPORT INFORMATION
  Report Type: Spontaneous
  Country: US (occurrence: US)
  Receive Date: 20240919
  Receipt Date: 20250310
  Transmission Date: 20250408
  Serious: No
  Sender: SANOFI AVENTIS
  Company Number: US-SA-2024SA267383

PATIENT
  Age: 61 Year
  Sex: Female

DRUGS (4)
  1. DUPIXENT [Suspect]
     Active Substance: DUPILUMAB
     Indication: Eczema
     Route: 058
     Dates: start: 20240806, end: 20240806
  2. DUPIXENT [Suspect]
     Active Substance: DUPILUMAB
     Indication: Nasal polyps
     Dosage: 300 MG, QOW
     Route: 058
     Dates: start: 20240820, end: 20250204
  3. DUPIXENT [Suspect]
     Active Substance: DUPILUMAB
     Indication: Dermatitis
     Dosage: 300 MG, QOW
     Route: 058
     Dates: start: 2025
  4. DUPIXENT [Suspect]
     Active Substance: DUPILUMAB
     Indication: Dermatitis atopic

REACTIONS (17)
  - Injection site urticaria [Recovered/Resolved]
  - Injection site irritation [Recovered/Resolved]
  - Condition aggravated [Unknown]
  - Injection site warmth [Unknown]
  - Eyelid skin dryness [Recovering/Resolving]
  - Fungal foot infection [Unknown]
  - Eyelids pruritus [Recovering/Resolving]
  - Eyelid rash [Unknown]
  - Injection site cellulitis [Unknown]
  - Peripheral swelling [Unknown]
  - Erythema of eyelid [Unknown]
  - Swelling of eyelid [Recovering/Resolving]
  - Pruritus [Unknown]
  - Injection site erythema [Unknown]
  - Arthralgia [Unknown]
  - Rash [Recovering/Resolving]
  - Product use in unapproved indication [Unknown]

NARRATIVE: CASE EVENT DATE: 20240101
